FAERS Safety Report 5162213-3 (Version None)
Quarter: 2006Q4

REPORT INFORMATION
  Report Type: 
  Country: None (occurrence: None)
  Receive Date: 20061121
  Receipt Date: 20061108
  Transmission Date: 20070319
  Serious: Yes (Other)
  Sender: FDA-Public Use
  Company Number: 232309

PATIENT
  Sex: Female

DRUGS (2)
  1. AVASTIN [Suspect]
     Indication: BREAST CANCER METASTATIC
     Dosage: 10 MG, INTRAVENOUS
     Route: 042
  2. XELODA [Concomitant]

REACTIONS (3)
  - ERUCTATION [None]
  - RETINAL DETACHMENT [None]
  - RETINAL TEAR [None]
